FAERS Safety Report 6297464-8 (Version None)
Quarter: 2009Q3

REPORT INFORMATION
  Report Type: 
  Country: None (occurrence: None)
  Receive Date: 20090805
  Receipt Date: 20090724
  Transmission Date: 20100115
  Serious: Yes (Hospitalization)
  Sender: FDA-Public Use
  Company Number: NL-BAYER-200926839GPV

PATIENT
  Age: 70 Year
  Sex: Male
  Weight: 90 kg

DRUGS (8)
  1. ALEMTUZUMAB [Suspect]
     Indication: CHRONIC LYMPHOCYTIC LEUKAEMIA
     Dosage: 5 CYCLES
     Route: 058
     Dates: start: 20090109, end: 20090511
  2. FLUDARABINE PHOSPHATE [Suspect]
     Indication: CHRONIC LYMPHOCYTIC LEUKAEMIA
     Dosage: 5 CYCLES
     Route: 048
     Dates: start: 20090121, end: 20090513
  3. CYCLOPHOSPHAMIDE [Suspect]
     Indication: CHRONIC LYMPHOCYTIC LEUKAEMIA
     Dosage: 5 CYCLES
     Route: 048
     Dates: start: 20090121, end: 20090513
  4. COTRIM [Concomitant]
     Indication: PROPHYLAXIS
     Route: 048
     Dates: start: 20090117, end: 20090608
  5. VALACYCLOVIR HCL [Concomitant]
     Indication: PROPHYLAXIS
     Route: 048
     Dates: start: 20090117, end: 20090608
  6. PARACETAMOL [Concomitant]
     Indication: PROPHYLAXIS
     Route: 048
     Dates: start: 20090119, end: 20090511
  7. METOCLOPRAMIDE [Concomitant]
     Indication: PROPHYLAXIS
     Route: 048
     Dates: start: 20090119, end: 20090608
  8. RANITIDINE [Concomitant]
     Indication: PROPHYLAXIS
     Route: 048
     Dates: start: 20090119, end: 20090608

REACTIONS (11)
  - ANAEMIA [None]
  - DECREASED APPETITE [None]
  - FATIGUE [None]
  - GASTRITIS [None]
  - LEUKOPENIA [None]
  - MALAISE [None]
  - NAUSEA [None]
  - PYREXIA [None]
  - RED BLOOD CELL SEDIMENTATION RATE INCREASED [None]
  - THROMBOCYTOPENIA [None]
  - WEIGHT DECREASED [None]
